FAERS Safety Report 6154012-0 (Version None)
Quarter: 2009Q2

REPORT INFORMATION
  Report Type: 
  Country: None (occurrence: None)
  Receive Date: 20090414
  Receipt Date: 20090408
  Transmission Date: 20091009
  Serious: Yes (Hospitalization, Other)
  Sender: FDA-Public Use
  Company Number: PHHY2009GB08218

PATIENT
  Sex: Female

DRUGS (3)
  1. ZOLEDRONIC ACID [Suspect]
     Indication: OSTEITIS DEFORMANS
     Dosage: ONCE/SINGLE
     Route: 042
     Dates: start: 20090203, end: 20090203
  2. FELODIPINE [Concomitant]
     Dosage: 10 MG, QD
     Route: 048
  3. LISINOPRIL [Concomitant]
     Dosage: 20 MG, QD
     Route: 048

REACTIONS (18)
  - BLINDNESS [None]
  - DIZZINESS [None]
  - EYE IRRITATION [None]
  - EYE PAIN [None]
  - EYE PRURITUS [None]
  - EYELID OEDEMA [None]
  - IRITIS [None]
  - LACRIMATION INCREASED [None]
  - MALAISE [None]
  - MUSCLE SPASMS [None]
  - MYALGIA [None]
  - OCULAR HYPERAEMIA [None]
  - PHOTOPHOBIA [None]
  - TREMOR [None]
  - UVEITIS [None]
  - VISION BLURRED [None]
  - VISUAL IMPAIRMENT [None]
  - VOMITING [None]
